FAERS Safety Report 7963686-0 (Version None)
Quarter: 2011Q4

REPORT INFORMATION
  Report Type: 
  Country: None (occurrence: None)
  Receive Date: 20111208
  Receipt Date: 20111104
  Transmission Date: 20120403
  Serious: No
  Sender: FDA-Public Use
  Company Number: US-BAYER-2011-108476

PATIENT
  Age: 83 Year
  Sex: Female
  Weight: 52 kg

DRUGS (5)
  1. SYNTHROID [Concomitant]
  2. ATIVAN [Concomitant]
  3. ANTIHYPERTENSIVES [Concomitant]
  4. ALEVE (CAPLET) [Suspect]
     Indication: BACK PAIN
     Dosage: 2 DF, PRN
     Route: 048
     Dates: start: 20101201
  5. MULTI-VITAMIN [Concomitant]

REACTIONS (1)
  - BACK PAIN [None]
